FAERS Safety Report 10752282 (Version 4)
Quarter: 2015Q2

REPORT INFORMATION
  Report Type: Spontaneous
  Country: JP (occurrence: JP)
  Receive Date: 20150130
  Receipt Date: 20150421
  Transmission Date: 20150821
  Serious: Yes (Other)
  Sender: FDA-Public Use
  Company Number: JP-JNJFOC-20150118716

PATIENT
  Age: 57 Year
  Sex: Female
  Weight: 53 kg

DRUGS (7)
  1. REBETOL [Concomitant]
     Active Substance: RIBAVIRIN
     Indication: CHRONIC HEPATITIS C
     Route: 048
     Dates: start: 20141106, end: 20141203
  2. REBETOL [Concomitant]
     Active Substance: RIBAVIRIN
     Indication: CHRONIC HEPATITIS C
     Route: 048
     Dates: start: 20141127, end: 20150122
  3. ESZOPICLONE. [Concomitant]
     Active Substance: ESZOPICLONE
     Indication: PROPHYLAXIS
     Route: 048
     Dates: start: 20141106, end: 20141106
  4. REBETOL [Concomitant]
     Active Substance: RIBAVIRIN
     Indication: CHRONIC HEPATITIS C
     Route: 048
     Dates: start: 20141204, end: 20150122
  5. ETODOLAC. [Concomitant]
     Active Substance: ETODOLAC
     Indication: PROPHYLAXIS
     Route: 048
     Dates: start: 20141106, end: 20141109
  6. PEGINTRON [Suspect]
     Active Substance: PEGINTERFERON ALFA-2B
     Indication: CHRONIC HEPATITIS C
     Route: 042
     Dates: start: 20141106, end: 20150122
  7. SOVRIAD [Suspect]
     Active Substance: SIMEPREVIR
     Indication: CHRONIC HEPATITIS C
     Route: 048
     Dates: start: 20141106, end: 20150122

REACTIONS (1)
  - Interstitial lung disease [Not Recovered/Not Resolved]

NARRATIVE: CASE EVENT DATE: 20141124
